FAERS Safety Report 21458552 (Version 1)
Quarter: 2022Q4

REPORT INFORMATION
  Report Type: Spontaneous
  Country: US (occurrence: US)
  Receive Date: 20221014
  Receipt Date: 20221014
  Transmission Date: 20230112
  Serious: No
  Sender: FDA-Public Use
  Company Number: US-ORGANON-O2210USA000224

PATIENT
  Age: 43 Year
  Sex: Female

DRUGS (8)
  1. SINGULAIR [Suspect]
     Active Substance: MONTELUKAST SODIUM
     Dosage: UNK
     Route: 048
  2. XOLAIR [Concomitant]
     Active Substance: OMALIZUMAB
     Dosage: UNK
  3. FLUTICASONE [Concomitant]
     Active Substance: FLUTICASONE
     Dosage: UNK
  4. HYDROXYZINE PAMOATE [Concomitant]
     Active Substance: HYDROXYZINE PAMOATE
     Dosage: UNK
  5. ONDANSETRON [Concomitant]
     Active Substance: ONDANSETRON
     Dosage: UNK
  6. PANTOPRAZOLE [Concomitant]
     Active Substance: PANTOPRAZOLE
     Dosage: UNK
  7. ROPINIROLE [Concomitant]
     Active Substance: ROPINIROLE
     Dosage: UNK
  8. SUCRALFATE [Concomitant]
     Active Substance: SUCRALFATE
     Dosage: UNK

REACTIONS (1)
  - Hypotension [Unknown]

NARRATIVE: CASE EVENT DATE: 20220809
